FAERS Safety Report 6946636-5 (Version None)
Quarter: 2010Q3

REPORT INFORMATION
  Report Type: 
  Country: None (occurrence: None)
  Receive Date: 20100825
  Receipt Date: 20100811
  Transmission Date: 20110219
  Serious: Yes (Hospitalization)
  Sender: FDA-Public Use
  Company Number: 1000015408

PATIENT
  Age: 41 Year
  Sex: Female
  Weight: 47 kg

DRUGS (4)
  1. ESCITALOPRAM OXALATE [Suspect]
     Indication: MAJOR DEPRESSION
     Dosage: 20 MG (20 MG, 1 IN 1 D),ORAL
     Route: 048
     Dates: start: 20100614
  2. MULTIPLE DRUGS NOS [Suspect]
     Dosage: AMOUNT (ONCE)
     Dates: start: 20100701, end: 20100701
  3. ALCOHOL [Suspect]
     Dosage: AMOUNT (ONCE)
     Dates: start: 20100701, end: 20100701
  4. TRANXENE [Concomitant]

REACTIONS (4)
  - ALCOHOL USE [None]
  - MULTIPLE DRUG OVERDOSE INTENTIONAL [None]
  - ROAD TRAFFIC ACCIDENT [None]
  - SUICIDE ATTEMPT [None]
